FAERS Safety Report 22246048 (Version 4)
Quarter: 2024Q1

REPORT INFORMATION
  Report Type: Spontaneous
  Country: FR (occurrence: FR)
  Receive Date: 20230424
  Receipt Date: 20240212
  Transmission Date: 20240409
  Serious: Yes (Death, Hospitalization, Other)
  Sender: FDA-Public Use
  Company Number: FR-009507513-2304FRA005596

PATIENT
  Age: 80 Year
  Sex: Female
  Weight: 75 kg

DRUGS (29)
  1. KEYTRUDA [Suspect]
     Active Substance: PEMBROLIZUMAB
     Indication: Triple negative breast cancer
     Dosage: 200 MILLIGRAM, Q3W
     Route: 042
     Dates: start: 20221118, end: 20221118
  2. KEYTRUDA [Suspect]
     Active Substance: PEMBROLIZUMAB
     Dosage: 200 MILLIGRAM, Q3W
     Route: 042
     Dates: start: 20221216, end: 20221216
  3. KEYTRUDA [Suspect]
     Active Substance: PEMBROLIZUMAB
     Dosage: 200 MILLIGRAM, Q3W
     Route: 042
     Dates: start: 20230113, end: 20230113
  4. KEYTRUDA [Suspect]
     Active Substance: PEMBROLIZUMAB
     Dosage: 200 MILLIGRAM, Q3W
     Route: 042
     Dates: start: 20230210, end: 20230210
  5. KEYTRUDA [Suspect]
     Active Substance: PEMBROLIZUMAB
     Dosage: 200 MILLIGRAM, Q3W
     Route: 042
     Dates: start: 20230224, end: 20230224
  6. TAXOL [Suspect]
     Active Substance: PACLITAXEL
     Indication: Triple negative breast cancer
     Dosage: UNK UNK, QW
     Dates: start: 20221118, end: 20221118
  7. TAXOL [Suspect]
     Active Substance: PACLITAXEL
     Dosage: UNK UNK, QW
     Dates: start: 20221125, end: 20221125
  8. TAXOL [Suspect]
     Active Substance: PACLITAXEL
     Dosage: UNK UNK, QW
     Dates: start: 20221209, end: 20221209
  9. TAXOL [Suspect]
     Active Substance: PACLITAXEL
     Dosage: UNK UNK, QW
     Dates: start: 20221216, end: 20221216
  10. TAXOL [Suspect]
     Active Substance: PACLITAXEL
     Dosage: UNK UNK, QW
     Dates: start: 20221223, end: 20221223
  11. TAXOL [Suspect]
     Active Substance: PACLITAXEL
     Dosage: UNK UNK, QW
     Dates: start: 20230106, end: 20230106
  12. TAXOL [Suspect]
     Active Substance: PACLITAXEL
     Dosage: UNK UNK, QW
     Dates: start: 20230113, end: 20230113
  13. TAXOL [Suspect]
     Active Substance: PACLITAXEL
     Dosage: UNK UNK, QW
     Dates: start: 20230120, end: 20230120
  14. TAXOL [Suspect]
     Active Substance: PACLITAXEL
     Dosage: UNK UNK, QW
     Dates: start: 20230210, end: 20230210
  15. TAXOL [Suspect]
     Active Substance: PACLITAXEL
     Dosage: UNK UNK, QW
     Dates: start: 20230224, end: 20230224
  16. CARBOPLATIN [Suspect]
     Active Substance: CARBOPLATIN
     Indication: Triple negative breast cancer
     Dosage: UNK UNK, QW
     Dates: start: 20221118, end: 20221118
  17. CARBOPLATIN [Suspect]
     Active Substance: CARBOPLATIN
     Dosage: UNK UNK, QW
     Dates: start: 20221125, end: 20221125
  18. CARBOPLATIN [Suspect]
     Active Substance: CARBOPLATIN
     Dosage: UNK UNK, QW
     Dates: start: 20221209, end: 20221209
  19. CARBOPLATIN [Suspect]
     Active Substance: CARBOPLATIN
     Dosage: UNK UNK, QW
     Dates: start: 20221216, end: 20221216
  20. CARBOPLATIN [Suspect]
     Active Substance: CARBOPLATIN
     Dosage: UNK UNK, QW
     Dates: start: 20221223, end: 20221223
  21. CARBOPLATIN [Suspect]
     Active Substance: CARBOPLATIN
     Dosage: UNK UNK, QW
     Dates: start: 20230106, end: 20230106
  22. CARBOPLATIN [Suspect]
     Active Substance: CARBOPLATIN
     Dosage: UNK UNK, QW
     Dates: start: 20230113, end: 20230113
  23. CARBOPLATIN [Suspect]
     Active Substance: CARBOPLATIN
     Dosage: UNK UNK, QW
     Dates: start: 20230120, end: 20230120
  24. CARBOPLATIN [Suspect]
     Active Substance: CARBOPLATIN
     Dosage: UNK UNK, QW
     Dates: start: 20230210, end: 20230210
  25. CARBOPLATIN [Suspect]
     Active Substance: CARBOPLATIN
     Dosage: UNK UNK, QW
     Dates: start: 20230224, end: 20230224
  26. KETOPROFEN [Concomitant]
     Active Substance: KETOPROFEN
     Dosage: 100 MILLIGRAM
     Dates: start: 20230130, end: 20230220
  27. DOLIPRANE [Concomitant]
     Active Substance: ACETAMINOPHEN
     Dosage: 500 MILLIGRAM
     Dates: start: 20230130, end: 20230227
  28. ACUPAN [Concomitant]
     Active Substance: NEFOPAM HYDROCHLORIDE
     Dosage: UNK
     Dates: start: 20230130, end: 20230227
  29. PANTOPRAZOLE SODIUM [Concomitant]
     Active Substance: PANTOPRAZOLE SODIUM
     Dosage: 20 MILLIGRAM
     Dates: start: 20230130, end: 20230220

REACTIONS (5)
  - Meningitis aseptic [Fatal]
  - Malignant neoplasm progression [Unknown]
  - Inappropriate schedule of product administration [Unknown]
  - Inappropriate schedule of product administration [Unknown]
  - Inappropriate schedule of product administration [Unknown]

NARRATIVE: CASE EVENT DATE: 20221216
